FAERS Safety Report 13669969 (Version 3)
Quarter: 2017Q3

REPORT INFORMATION
  Report Type: Report from Study
  Country: US (occurrence: US)
  Receive Date: 20170620
  Receipt Date: 20170731
  Transmission Date: 20171127
  Serious: No
  Sender: FDA-Public Use
  Company Number: US-AMGEN-USASL2017090787

PATIENT
  Age: 70 Year
  Sex: Female

DRUGS (1)
  1. ENBREL [Suspect]
     Active Substance: ETANERCEPT
     Indication: RHEUMATOID ARTHRITIS
     Dosage: UNK
     Route: 065

REACTIONS (10)
  - Dyspnoea [Unknown]
  - Injection site swelling [Unknown]
  - Fatigue [Unknown]
  - Amnesia [Unknown]
  - Injection site erythema [Unknown]
  - Headache [Unknown]
  - Injection site warmth [Unknown]
  - Dizziness [Unknown]
  - Lethargy [Unknown]
  - Injection site pruritus [Unknown]
